FAERS Safety Report 5892553-1 (Version None)
Quarter: 2008Q3

REPORT INFORMATION
  Report Type: 
  Country: None (occurrence: None)
  Receive Date: 20080923
  Receipt Date: 20080908
  Transmission Date: 20090109
  Serious: Yes (Hospitalization, Other)
  Sender: FDA-Public Use
  Company Number: FR-ELI_LILLY_AND_COMPANY-FR200805005938

PATIENT
  Sex: Male
  Weight: 75 kg

DRUGS (4)
  1. ALIMTA [Suspect]
     Indication: NON-SMALL CELL LUNG CANCER
     Dosage: 500 MG/M2, UNKNOWN
     Route: 042
     Dates: start: 20080328
  2. ALIMTA [Suspect]
     Dosage: 975 MG, UNKNOWN
     Route: 042
     Dates: start: 20080418, end: 20080418
  3. FOLIC ACID [Concomitant]
     Indication: VITAMIN SUPPLEMENTATION
     Dosage: UNK, UNKNOWN
     Route: 048
     Dates: start: 20080320, end: 20080515
  4. VITAMIN B-12 [Concomitant]
     Indication: VITAMIN SUPPLEMENTATION
     Dosage: UNK, UNKNOWN
     Route: 030

REACTIONS (9)
  - ANAEMIA [None]
  - DRUG INTOLERANCE [None]
  - GENERAL PHYSICAL HEALTH DETERIORATION [None]
  - HEPATIC FAILURE [None]
  - INFLAMMATION [None]
  - PLEURAL EFFUSION [None]
  - PYREXIA [None]
  - RASH PRURITIC [None]
  - THROMBOCYTOPENIA [None]
